FAERS Safety Report 5328600-5 (Version None)
Quarter: 2007Q2

REPORT INFORMATION
  Report Type: 
  Country: None (occurrence: None)
  Receive Date: 20070518
  Receipt Date: 20070515
  Transmission Date: 20071010
  Serious: Yes (Hospitalization, Other)
  Sender: FDA-Public Use
  Company Number: US-JNJFOC-20070501583

PATIENT
  Age: 38 Year
  Sex: Male

DRUGS (9)
  1. PREZISTA [Suspect]
     Indication: HIV INFECTION
     Route: 048
  2. MK0518 [Suspect]
     Indication: HIV INFECTION
     Route: 048
  3. RITONAVIR [Suspect]
     Indication: HIV INFECTION
     Route: 065
  4. ZIAGEN [Suspect]
     Indication: HIV INFECTION
     Route: 065
  5. TRUVADA [Suspect]
     Indication: HIV INFECTION
     Route: 065
  6. ZERIT [Suspect]
     Indication: HIV INFECTION
     Route: 065
  7. VALCYTE [Concomitant]
     Route: 065
  8. BACTRIM DS [Concomitant]
     Route: 065
  9. ZYVOX [Concomitant]
     Route: 065

REACTIONS (2)
  - ABDOMINAL PAIN [None]
  - IMMUNE RECONSTITUTION SYNDROME [None]
